FAERS Safety Report 5461081-X (Version None)
Quarter: 2007Q3

REPORT INFORMATION
  Report Type: 
  Country: None (occurrence: None)
  Receive Date: 20070918
  Receipt Date: 20070918
  Transmission Date: 20080115
  Serious: No
  Sender: FDA-Public Use
  Company Number: None

PATIENT

DRUGS (2)
  1. ALBUTEROL SULFATE [Suspect]
     Dosage: ALBUTEROL NDC:
  2. IPRATROPIUM BROMIDE 0.02% -0.5 MG/ VIAL- 30 X 2.5 ML NEPHRON PHARMACEU [Suspect]
     Dosage: IPRATROPIUM NDC:

REACTIONS (2)
  - CIRCUMSTANCE OR INFORMATION CAPABLE OF LEADING TO MEDICATION ERROR [None]
  - MEDICATION ERROR [None]
